FAERS Safety Report 14499197 (Version 1)
Quarter: 2018Q1

REPORT INFORMATION
  Report Type: Spontaneous
  Country: US (occurrence: US)
  Receive Date: 20180207
  Receipt Date: 20180207
  Transmission Date: 20180509
  Serious: No
  Sender: FDA-Public Use
  Company Number: US-JAZZ-2017-US-006149

PATIENT
  Age: 50 Year
  Sex: Female

DRUGS (2)
  1. PRIALT [Suspect]
     Active Substance: ZICONOTIDE ACETATE
     Indication: PAIN
     Dosage: 0.1 ?G BOLUS
     Route: 037
  2. PRIALT [Suspect]
     Active Substance: ZICONOTIDE ACETATE
     Dosage: .05?G, QH
     Route: 037
     Dates: start: 2017

REACTIONS (6)
  - Disturbance in attention [Unknown]
  - Gait disturbance [Unknown]
  - Device issue [Unknown]
  - Vision blurred [Unknown]
  - Diplopia [Unknown]
  - Vertigo [Unknown]

NARRATIVE: CASE EVENT DATE: 201612
